FAERS Safety Report 20186015 (Version 4)
Quarter: 2022Q2

REPORT INFORMATION
  Report Type: Report from Study
  Country: US (occurrence: US)
  Receive Date: 20211215
  Receipt Date: 20220407
  Transmission Date: 20220721
  Serious: Yes (Hospitalization, Other)
  Sender: FDA-Public Use
  Company Number: US-TAKEDA-2021TUS078717

PATIENT
  Age: 78 Year
  Sex: Male
  Weight: 93 kg

DRUGS (1)
  1. IXAZOMIB [Suspect]
     Active Substance: IXAZOMIB
     Indication: Plasma cell myeloma
     Dosage: 3 MILLIGRAM
     Route: 065
     Dates: start: 20210831, end: 202111

REACTIONS (9)
  - Femur fracture [Unknown]
  - Upper limb fracture [Unknown]
  - Cancer pain [Unknown]
  - Cardiac failure congestive [Unknown]
  - Fall [Unknown]
  - Lower limb fracture [Unknown]
  - Illness [Unknown]
  - Product physical issue [Unknown]
  - Product dose omission issue [Unknown]

NARRATIVE: CASE EVENT DATE: 20211001
